FAERS Safety Report 8912284 (Version 6)
Quarter: 2015Q3

REPORT INFORMATION
  Report Type: Report from Study
  Country: FR (occurrence: FR)
  Receive Date: 20121116
  Receipt Date: 20150924
  Transmission Date: 20151125
  Serious: Yes (Other)
  Sender: FDA-Public Use
  Company Number: FR-NOVOPROD-363499

PATIENT
  Age: 13 Year
  Sex: Female
  Weight: 63 kg

DRUGS (6)
  1. NORDITROPIN [Suspect]
     Active Substance: SOMATROPIN
     Dosage: 1.1 MG, QD
     Route: 058
     Dates: start: 201209
  2. DESMOPRESSINE [Concomitant]
     Dosage: 60 ?G, TID
     Route: 048
     Dates: start: 20040930
  3. ESTRADIOL. [Concomitant]
     Active Substance: ESTRADIOL
     Dosage: 4 ?G, QD
     Route: 062
     Dates: start: 20100203
  4. NORDITROPIN [Suspect]
     Active Substance: SOMATROPIN
     Indication: GROWTH HORMONE DEFICIENCY
     Dosage: 1.1 MG, QD
     Route: 058
     Dates: start: 20060413, end: 20120320
  5. LEVOTHYROX [Concomitant]
     Active Substance: LEVOTHYROXINE
     Dosage: 125 ?G, QD
     Route: 065
     Dates: start: 20040930
  6. HYDROCORTISONE. [Concomitant]
     Active Substance: HYDROCORTISONE
     Dosage: 4.3 MG, TID
     Route: 048
     Dates: start: 20040930

REACTIONS (1)
  - Craniopharyngioma [Recovered/Resolved]

NARRATIVE: CASE EVENT DATE: 20120323
